FAERS Safety Report 12233437 (Version 1)
Quarter: 2016Q2

REPORT INFORMATION
  Report Type: Spontaneous
  Country: CN (occurrence: CN)
  Receive Date: 20160404
  Receipt Date: 20160404
  Transmission Date: 20160815
  Serious: Yes (Other)
  Sender: FDA-Public Use
  Company Number: CN-BAXTER-2016BAX016809

PATIENT
  Age: 41 Year
  Sex: Female
  Weight: 50 kg

DRUGS (18)
  1. 0.9% SODIUM CHLORIDE INJECTION [Suspect]
     Active Substance: SODIUM CHLORIDE
     Dosage: SOLVENT FOR XINSHUNER
     Route: 041
     Dates: start: 20150909, end: 20150909
  2. CYCLOPHOSPHAMIDE. [Suspect]
     Active Substance: CYCLOPHOSPHAMIDE
     Indication: BREAST CANCER
     Route: 041
     Dates: start: 20150909, end: 20150909
  3. 0.9% SODIUM CHLORIDE INJECTION [Suspect]
     Active Substance: SODIUM CHLORIDE
     Indication: MEDICATION DILUTION
     Dosage: SOLVENT FOR CYCLOPHOSPHAMIDE
     Route: 041
     Dates: start: 20150909, end: 20150909
  4. SODIUM CHLORIDE. [Suspect]
     Active Substance: SODIUM CHLORIDE
     Indication: MEDICATION DILUTION
     Dosage: SOLVENT FOR PHARMORUBICIN
     Route: 041
     Dates: start: 20150909, end: 20150909
  5. GLUCOSE [Suspect]
     Active Substance: DEXTROSE
     Indication: MEDICATION DILUTION
     Dosage: SOLVENT FOR FLOXURIDINE
     Route: 041
     Dates: start: 20150909, end: 20150909
  6. 0.9% SODIUM CHLORIDE INJECTION [Suspect]
     Active Substance: SODIUM CHLORIDE
     Dosage: SOLVENT FOR CYCLOPHOSPHAMIDE
     Route: 041
  7. PHARMORUBICIN [Suspect]
     Active Substance: EPIRUBICIN
     Route: 041
  8. FLOXURIDINE. [Suspect]
     Active Substance: FLOXURIDINE
     Route: 041
  9. PHARMORUBICIN [Suspect]
     Active Substance: EPIRUBICIN
     Indication: BREAST CANCER
     Route: 041
     Dates: start: 20150909, end: 20150909
  10. SODIUM CHLORIDE. [Suspect]
     Active Substance: SODIUM CHLORIDE
     Dosage: SOLVENT FOR PHARMORUBICIN
     Route: 041
  11. FLOXURIDINE. [Suspect]
     Active Substance: FLOXURIDINE
     Indication: BREAST CANCER
     Route: 041
     Dates: start: 20150909, end: 20150909
  12. GLUCOSE [Suspect]
     Active Substance: DEXTROSE
     Dosage: SOLVENT FOR GLUCOSE
     Route: 041
  13. CYCLOPHOSPHAMIDE. [Suspect]
     Active Substance: CYCLOPHOSPHAMIDE
     Route: 041
  14. XINSHUNER [Suspect]
     Active Substance: TROPISETRON HYDROCHLORIDE
     Indication: BREAST CANCER
     Route: 041
     Dates: start: 20150909, end: 20150909
  15. XINSHUNER [Suspect]
     Active Substance: TROPISETRON HYDROCHLORIDE
     Route: 041
  16. DIPHENHYDRAMINE HYDROCHLORIDE. [Suspect]
     Active Substance: DIPHENHYDRAMINE HYDROCHLORIDE
     Indication: BREAST CANCER
     Route: 030
     Dates: start: 20150909, end: 20150909
  17. DIPHENHYDRAMINE HYDROCHLORIDE. [Suspect]
     Active Substance: DIPHENHYDRAMINE HYDROCHLORIDE
     Route: 030
  18. 0.9% SODIUM CHLORIDE INJECTION [Suspect]
     Active Substance: SODIUM CHLORIDE
     Dosage: SOLVENT FOR XINSHUNER
     Route: 041

REACTIONS (1)
  - Bone marrow failure [Recovering/Resolving]

NARRATIVE: CASE EVENT DATE: 20150915
